FAERS Safety Report 10161975 (Version 5)
Quarter: 2014Q3

REPORT INFORMATION
  Report Type: Spontaneous
  Country: US (occurrence: None)
  Receive Date: 20140507
  Receipt Date: 20140827
  Transmission Date: 20150326
  Serious: Yes (Death, Hospitalization)
  Sender: FDA-Public Use
  Company Number: UTC-047918

PATIENT
  Age: 55 Year
  Sex: Female
  Weight: 54.9 kg

DRUGS (2)
  1. REMODULIN [Suspect]
     Active Substance: TREPROSTINIL
     Indication: COR PULMONALE CHRONIC
     Dosage: 2.88 UG/KG (0.002 UG/KG, 1 IN 1 MIN), SUBCUTANEOUS
     Route: 058
     Dates: start: 20140408
  2. TYVASO [Suspect]
     Active Substance: TREPROSTINIL
     Route: 055
     Dates: start: 20131122

REACTIONS (14)
  - Hepatic failure [None]
  - Urinary tract infection [None]
  - Oedema [None]
  - Pulmonary arterial hypertension [None]
  - Abdominal pain [None]
  - Kidney infection [None]
  - Hyperhidrosis [None]
  - Dehydration [None]
  - Diarrhoea [None]
  - Cold sweat [None]
  - Hypotension [None]
  - Pneumonia [None]
  - Respiratory arrest [None]
  - Vomiting [None]

NARRATIVE: CASE EVENT DATE: 201404
